FAERS Safety Report 18792573 (Version 1)
Quarter: 2021Q1

REPORT INFORMATION
  Report Type: Spontaneous
  Country: RO (occurrence: RO)
  Receive Date: 20210127
  Receipt Date: 20210127
  Transmission Date: 20210419
  Serious: Yes (Hospitalization, Other)
  Sender: FDA-Public Use
  Company Number: RO-TEVA-2021-RO-1873412

PATIENT
  Age: 63 Year
  Sex: Female

DRUGS (3)
  1. METHOTREXATE. [Suspect]
     Active Substance: METHOTREXATE
     Route: 058
  2. PANTOPRAZOLE [Concomitant]
     Active Substance: PANTOPRAZOLE
     Route: 042
  3. METHYLPREDNISOLONE. [Concomitant]
     Active Substance: METHYLPREDNISOLONE
     Dosage: HIGH?DOSE CORTICOSTEROID REGIMEN

REACTIONS (3)
  - Nephrotic syndrome [Recovered/Resolved]
  - Toxicity to various agents [Recovered/Resolved]
  - Pancytopenia [Recovered/Resolved]
